FAERS Safety Report 20466387 (Version 6)
Quarter: 2022Q4

REPORT INFORMATION
  Report Type: Report from Study
  Country: IN (occurrence: IN)
  Receive Date: 20220213
  Receipt Date: 20221129
  Transmission Date: 20230112
  Serious: Yes (Other)
  Sender: FDA-Public Use
  Company Number: IN-NOVARTISPH-NVSC2020IN301737

PATIENT
  Age: 54 Year
  Sex: Female

DRUGS (7)
  1. CERITINIB [Suspect]
     Active Substance: CERITINIB
     Indication: Non-small cell lung cancer
     Dosage: 450 MG, QD
     Route: 048
     Dates: start: 20200724, end: 20210802
  2. CERITINIB [Suspect]
     Active Substance: CERITINIB
     Dosage: UNK (150 MG-0-300 MG OD)
     Route: 065
     Dates: start: 20210803
  3. CERITINIB [Suspect]
     Active Substance: CERITINIB
     Dosage: UNK 150MG-0-300MG OD (150 MG IN THE MORNING AND 300 MG IN THE EVENING)
     Route: 065
     Dates: start: 20220201
  4. CERITINIB [Suspect]
     Active Substance: CERITINIB
     Dosage: 150 MG (150MG-0-300MG)
     Route: 065
     Dates: start: 20220309
  5. CERITINIB [Suspect]
     Active Substance: CERITINIB
     Dosage: UNK (150MG-0-300MG)
     Route: 065
     Dates: start: 20220622
  6. CERITINIB [Suspect]
     Active Substance: CERITINIB
     Dosage: UNK (150MG-0-300MG)
     Route: 065
     Dates: start: 20220713
  7. CERITINIB [Suspect]
     Active Substance: CERITINIB
     Dosage: UNK (150MG-0-300MG)
     Route: 065
     Dates: start: 20220718

REACTIONS (14)
  - Hepatitis B [Unknown]
  - Cerebrovascular accident [Recovering/Resolving]
  - Diabetes mellitus [Unknown]
  - Chills [Recovering/Resolving]
  - Pyrexia [Recovering/Resolving]
  - Somnolence [Recovering/Resolving]
  - Product use issue [Unknown]
  - Constipation [Recovered/Resolved]
  - Aphasia [Unknown]
  - Hypokinesia [Unknown]
  - Dysphagia [Unknown]
  - Asthenia [Unknown]
  - Fatigue [Recovering/Resolving]
  - Vomiting [Recovering/Resolving]

NARRATIVE: CASE EVENT DATE: 20210801
